FAERS Safety Report 9646361 (Version 1)
Quarter: 2013Q4

REPORT INFORMATION
  Report Type: Spontaneous
  Country: JP (occurrence: None)
  Receive Date: 20131024
  Receipt Date: 20131024
  Transmission Date: 20140711
  Serious: Yes (Other)
  Sender: FDA-Public Use
  Company Number: 2013P1020229

PATIENT
  Age: 81 Year
  Sex: Female

DRUGS (1)
  1. ALENDRONATE [Suspect]
     Indication: OSTEOPOROSIS

REACTIONS (4)
  - Impaired healing [None]
  - Tooth extraction [None]
  - Oral cavity fistula [None]
  - Osteonecrosis of jaw [None]
